FAERS Safety Report 4759376-8 (Version None)
Quarter: 2005Q3

REPORT INFORMATION
  Report Type: 
  Country: None (occurrence: None)
  Receive Date: 20050831
  Receipt Date: 20050818
  Transmission Date: 20060218
  Serious: Yes (Hospitalization)
  Sender: FDA-Public Use
  Company Number: 200507259

PATIENT
  Age: 42 Year
  Sex: Female

DRUGS (1)
  1. BOTOX [Suspect]
     Indication: MIGRAINE
     Dosage: 200 UNITS PRN IM
     Route: 030

REACTIONS (4)
  - COUGH [None]
  - DYSPHAGIA [None]
  - RASH GENERALISED [None]
  - RETCHING [None]
